FAERS Safety Report 9881811 (Version 1)
Quarter: 2014Q1

REPORT INFORMATION
  Report Type: Spontaneous
  Country: CL (occurrence: CL)
  Receive Date: 20140207
  Receipt Date: 20140207
  Transmission Date: 20141002
  Serious: Yes (Other)
  Sender: FDA-Public Use
  Company Number: CL-PFIZER INC-2014034249

PATIENT
  Age: 67 Year
  Sex: Female

DRUGS (3)
  1. ALTRULINE [Suspect]
     Indication: DEPRESSION
     Dosage: 100 MG, 1X/DAY
     Route: 048
     Dates: start: 2009, end: 201310
  2. TOBE [Concomitant]
  3. ALPRAZOLAM [Concomitant]

REACTIONS (6)
  - Cerebral infarction [Unknown]
  - Hypertension [Not Recovered/Not Resolved]
  - Blood cholesterol increased [Not Recovered/Not Resolved]
  - Nausea [Recovered/Resolved]
  - Vulvovaginal burning sensation [Not Recovered/Not Resolved]
  - Drug ineffective [Recovered/Resolved]
